FAERS Safety Report 5575517-7 (Version None)
Quarter: 2007Q4

REPORT INFORMATION
  Report Type: 
  Country: None (occurrence: None)
  Receive Date: 20071226
  Receipt Date: 20071211
  Transmission Date: 20080405
  Serious: Yes (Death)
  Sender: FDA-Public Use
  Company Number: GXKR2007US04496

PATIENT
  Age: 66 Year
  Sex: Male

DRUGS (8)
  1. PROPOFOL [Suspect]
     Indication: SEDATION
     Dosage: 30 A, AUG/KG/MIN, INFUSION
  2. METHYLPREDNISOLONE [Suspect]
     Indication: POLYMYOSITIS
     Dosage: 500 MG/DAY, INTRAVENOUS
     Route: 042
  3. PREDNISONE [Suspect]
     Dosage: 7.5 MG/D, ORAL; 30 MG/D, ORAL
     Route: 048
  4. CYCLOSPORINE [Suspect]
     Indication: IMMUNOSUPPRESSION
     Dosage: 150 MG
  5. SIMVASTATIN [Suspect]
     Indication: HYPERLIPIDAEMIA
     Dosage: 30 MG/D; 60 MG/D
  6. COLCHICUM JTL LIQ [Suspect]
     Indication: GOUT
     Dosage: 0.6 MG, QD
  7. MYCOPHENOLATE SODIUM (MYCOPHENOLATE SODIUM) [Concomitant]
  8. INUSLIN (INSULIN) [Concomitant]

REACTIONS (18)
  - DRUG INTERACTION [None]
  - DRUG TOXICITY [None]
  - GAIT DISTURBANCE [None]
  - HAEMODIALYSIS [None]
  - HYPOREFLEXIA [None]
  - INTUBATION [None]
  - MECHANICAL VENTILATION [None]
  - MUSCULAR WEAKNESS [None]
  - MYALGIA [None]
  - OLIGURIA [None]
  - OPHTHALMOPLEGIA [None]
  - PNEUMONIA [None]
  - POLYMYOSITIS [None]
  - QUADRIPLEGIA [None]
  - RESPIRATORY FAILURE [None]
  - RHABDOMYOLYSIS [None]
  - SEPTIC SHOCK [None]
  - WEIGHT DECREASED [None]
